FAERS Safety Report 21010838 (Version 2)
Quarter: 2022Q2

REPORT INFORMATION
  Report Type: Spontaneous
  Country: AU (occurrence: None)
  Receive Date: 20220627
  Receipt Date: 20220628
  Transmission Date: 20220721
  Serious: Yes (Other)
  Sender: FDA-Public Use
  Company Number: AU-ROCHE-3124221

PATIENT
  Sex: Male

DRUGS (6)
  1. RITUXIMAB [Suspect]
     Active Substance: RITUXIMAB
     Indication: Diffuse large B-cell lymphoma refractory
     Dosage: R CHOP X 5 PD
     Route: 065
     Dates: start: 20220222, end: 20220517
  2. RITUXIMAB [Suspect]
     Active Substance: RITUXIMAB
     Dosage: R-GEMOX
     Route: 065
     Dates: start: 20220527, end: 20220609
  3. POLATUZUMAB VEDOTIN [Suspect]
     Active Substance: POLATUZUMAB VEDOTIN
     Indication: Diffuse large B-cell lymphoma refractory
     Dosage: BENDAMUSTINE AND POLATUZUMAB X 1 PD
     Route: 065
     Dates: start: 20220610, end: 20220622
  4. CYCLOPHOSPHAMIDE\DOXORUBICIN\PREDNISONE\VINCRISTINE [Suspect]
     Active Substance: CYCLOPHOSPHAMIDE\DOXORUBICIN\PREDNISONE\VINCRISTINE
     Indication: Diffuse large B-cell lymphoma refractory
     Dosage: R CHOP X 5 PD
     Route: 065
     Dates: start: 20220222, end: 20220517
  5. GEMCITABINE HYDROCHLORIDE\OXALIPLATIN [Suspect]
     Active Substance: GEMCITABINE HYDROCHLORIDE\OXALIPLATIN
     Indication: Diffuse large B-cell lymphoma refractory
     Dosage: GEM OXALIPLATIN X 1 PD
     Route: 065
     Dates: start: 20220527, end: 20220609
  6. BENDAMUSTINE [Suspect]
     Active Substance: BENDAMUSTINE
     Indication: Diffuse large B-cell lymphoma refractory
     Dosage: BENDAMUSTINE AND POLATUZUMAB X 1 PD
     Route: 065
     Dates: start: 20220610, end: 20220622

REACTIONS (1)
  - Diffuse large B-cell lymphoma refractory [Unknown]
